FAERS Safety Report 17764702 (Version 2)
Quarter: 2020Q2

REPORT INFORMATION
  Report Type: Spontaneous
  Country: IL (occurrence: IL)
  Receive Date: 20200511
  Receipt Date: 20200515
  Transmission Date: 20200714
  Serious: Yes (Hospitalization)
  Sender: FDA-Public Use
  Company Number: IL-ROCHE-2597974

PATIENT
  Age: 32 Year
  Sex: Female

DRUGS (3)
  1. ACTILYSE [Suspect]
     Active Substance: ALTEPLASE
     Indication: PERIPHERAL ISCHAEMIA
     Route: 065
     Dates: start: 20200311, end: 20200401
  2. SOLIRIS [Concomitant]
     Active Substance: ECULIZUMAB
  3. ACTILYSE [Suspect]
     Active Substance: ALTEPLASE
     Route: 065
     Dates: start: 20200415

REACTIONS (3)
  - Intentional product use issue [Unknown]
  - Leg amputation [Unknown]
  - Off label use [Unknown]

NARRATIVE: CASE EVENT DATE: 20200311
